FAERS Safety Report 11114223 (Version 3)
Quarter: 2015Q3

REPORT INFORMATION
  Report Type: Report from Study
  Country: US (occurrence: US)
  Receive Date: 20150514
  Receipt Date: 20150826
  Transmission Date: 20151125
  Serious: Yes (Other)
  Sender: FDA-Public Use
  Company Number: US-ABBVIE-15P-163-1388198-00

PATIENT
  Age: 53 Year
  Sex: Male
  Weight: 84.44 kg

DRUGS (9)
  1. CONDYLOX [Concomitant]
     Active Substance: PODOFILOX
     Indication: SKIN PAPILLOMA
     Dosage: 1 APPLICATION
     Dates: start: 20110407
  2. HUMIRA [Suspect]
     Active Substance: ADALIMUMAB
     Route: 058
     Dates: start: 20100311, end: 20100702
  3. CLOBETASOL [Concomitant]
     Active Substance: CLOBETASOL
     Indication: PSORIASIS
     Dosage: 1 APPLICATION
     Dates: start: 20041223
  4. CIPRO [Concomitant]
     Active Substance: CIPROFLOXACIN HYDROCHLORIDE
     Indication: URINARY TRACT INFECTION
     Dates: start: 20101027, end: 20101027
  5. DOVONEX [Concomitant]
     Active Substance: CALCIPOTRIENE
     Indication: PSORIASIS
     Dosage: 1 APPLICATION
     Dates: start: 2002
  6. CIPRO [Concomitant]
     Active Substance: CIPROFLOXACIN HYDROCHLORIDE
     Dates: start: 20110401
  7. HUMIRA [Suspect]
     Active Substance: ADALIMUMAB
     Indication: PSORIASIS
     Route: 058
     Dates: start: 20100304, end: 20100304
  8. HUMIRA [Suspect]
     Active Substance: ADALIMUMAB
     Route: 058
     Dates: start: 20100922, end: 20101012
  9. TAZORAC [Concomitant]
     Active Substance: TAZAROTENE
     Indication: PSORIASIS
     Dosage: 1 APPLICATION
     Dates: start: 200401

REACTIONS (1)
  - Urethral cancer [Recovered/Resolved]

NARRATIVE: CASE EVENT DATE: 20120508
